FAERS Safety Report 10747708 (Version 3)
Quarter: 2025Q1

REPORT INFORMATION
  Report Type: Spontaneous
  Country: US (occurrence: US)
  Receive Date: 20150129
  Receipt Date: 20250226
  Transmission Date: 20250409
  Serious: Yes (Other)
  Sender: AMGEN
  Company Number: US-AMGEN-USASL2015004752

PATIENT
  Sex: Male

DRUGS (2)
  1. ENBREL [Suspect]
     Active Substance: ETANERCEPT
     Indication: Maternal exposure during breast feeding
     Route: 063
  2. PREDNISONE [Suspect]
     Active Substance: PREDNISONE
     Indication: Maternal exposure during breast feeding
     Route: 064

REACTIONS (2)
  - Low birth weight baby [Unknown]
  - Exposure via breast milk [Unknown]
